FAERS Safety Report 15288768 (Version 1)
Quarter: 2018Q3

REPORT INFORMATION
  Report Type: Spontaneous
  Country: US (occurrence: US)
  Receive Date: 20180817
  Receipt Date: 20180817
  Transmission Date: 20181010
  Serious: No
  Sender: FDA-Public Use
  Company Number: US-ASTRAZENECA-2018SE98143

PATIENT
  Sex: Female
  Weight: 34 kg

DRUGS (1)
  1. FASLODEX [Suspect]
     Active Substance: FULVESTRANT
     Indication: BREAST CANCER
     Dosage: 250 MG INJECTIONS INTRAMUSCULAR AS PRESCRIBED DAYS 1, 15 THEN MONTHLY
     Route: 030
     Dates: start: 201805

REACTIONS (2)
  - Muscular weakness [Recovering/Resolving]
  - Nerve injury [Unknown]

NARRATIVE: CASE EVENT DATE: 20180727
